FAERS Safety Report 5116609-6 (Version None)
Quarter: 2006Q3

REPORT INFORMATION
  Report Type: 
  Country: None (occurrence: None)
  Receive Date: 20060928
  Receipt Date: 20060817
  Transmission Date: 20061208
  Serious: Yes (Hospitalization, Other)
  Sender: FDA-Public Use
  Company Number: US-AVENTIS-200618632GDDC

PATIENT
  Age: 63 Year
  Sex: Male

DRUGS (8)
  1. TAXOTERE [Suspect]
     Indication: NON-SMALL CELL LUNG CANCER METASTATIC
     Route: 042
     Dates: start: 20060801, end: 20060801
  2. ERBITUX [Suspect]
     Indication: NON-SMALL CELL LUNG CANCER METASTATIC
     Route: 042
     Dates: start: 20060801, end: 20060801
  3. CARBOPLATIN [Suspect]
     Indication: NON-SMALL CELL LUNG CANCER METASTATIC
     Route: 042
     Dates: start: 20060801, end: 20060801
  4. MAGNESIUM [Concomitant]
     Dosage: DOSE: UNK
     Dates: start: 20060801, end: 20060804
  5. MS CONTIN [Concomitant]
     Dosage: DOSE: UNK
     Dates: start: 20060216
  6. HYDROCHLOROTHIAZIDE [Concomitant]
     Dosage: DOSE: UNK
     Dates: start: 20000101
  7. CARDURA [Concomitant]
     Dosage: DOSE: UNK
  8. LISINOPRIL [Concomitant]
     Dosage: DOSE: UNK

REACTIONS (21)
  - ASTHENIA [None]
  - BALANCE DISORDER [None]
  - BLOOD CREATININE INCREASED [None]
  - DECREASED APPETITE [None]
  - DEHYDRATION [None]
  - DIARRHOEA [None]
  - FATIGUE [None]
  - HAEMOGLOBIN DECREASED [None]
  - HYPOTENSION [None]
  - NEUTROPENIA [None]
  - PLATELET COUNT DECREASED [None]
  - PURULENT DISCHARGE [None]
  - PYREXIA [None]
  - RENAL FAILURE ACUTE [None]
  - RENAL TUBULAR NECROSIS [None]
  - SERRATIA INFECTION [None]
  - TREATMENT NONCOMPLIANCE [None]
  - URINARY TRACT INFECTION [None]
  - URINE OUTPUT DECREASED [None]
  - VOMITING [None]
  - WHITE BLOOD CELL COUNT DECREASED [None]
